FAERS Safety Report 18247374 (Version 1)
Quarter: 2020Q3

REPORT INFORMATION
  Report Type: Report from Study
  Country: None (occurrence: US)
  Receive Date: 20200909
  Receipt Date: 20200909
  Transmission Date: 20201103
  Serious: Yes (Hospitalization, Other)
  Sender: FDA-Public Use
  Company Number: US-ABBVIE-20K-163-3448315-00

PATIENT
  Age: 60 Year
  Sex: Female

DRUGS (3)
  1. HUMIRA [Suspect]
     Active Substance: ADALIMUMAB
     Indication: CROHN^S DISEASE
     Dosage: DAY 1
     Route: 058
     Dates: start: 20200403, end: 20200403
  2. HUMIRA [Suspect]
     Active Substance: ADALIMUMAB
     Route: 058
     Dates: start: 2020
  3. HUMIRA [Suspect]
     Active Substance: ADALIMUMAB
     Dosage: DAY 15
     Route: 058
     Dates: start: 20200417, end: 20200417

REACTIONS (18)
  - Crohn^s disease [Unknown]
  - Night sweats [Unknown]
  - Ileostomy [Unknown]
  - Surgery [Unknown]
  - Decreased appetite [Not Recovered/Not Resolved]
  - Haematochezia [Recovering/Resolving]
  - Abdominal hernia [Unknown]
  - Colectomy [Unknown]
  - Post procedural complication [Unknown]
  - Weight decreased [Unknown]
  - Female genital tract fistula [Unknown]
  - Depressed mood [Unknown]
  - Rectal haemorrhage [Not Recovered/Not Resolved]
  - Abdominal pain [Unknown]
  - Diarrhoea [Not Recovered/Not Resolved]
  - Feeling abnormal [Unknown]
  - Anxiety [Unknown]
  - Therapeutic product effect incomplete [Unknown]

NARRATIVE: CASE EVENT DATE: 2020
